FAERS Safety Report 15757170 (Version 8)
Quarter: 2024Q4

REPORT INFORMATION
  Report Type: Spontaneous
  Country: FR (occurrence: FR)
  Receive Date: 20181224
  Receipt Date: 20241129
  Transmission Date: 20250115
  Serious: Yes (Other)
  Sender: NOVARTIS
  Company Number: PHHY2017FR199040

PATIENT
  Age: 70 Year
  Sex: Male

DRUGS (12)
  1. TERBINAFINE HYDROCHLORIDE [Suspect]
     Active Substance: TERBINAFINE HYDROCHLORIDE
     Indication: Scedosporium infection
     Dosage: 500 MG, BID
     Route: 065
  2. TERBINAFINE HYDROCHLORIDE [Suspect]
     Active Substance: TERBINAFINE HYDROCHLORIDE
     Indication: Arthritis infective
  3. TERBINAFINE HYDROCHLORIDE [Suspect]
     Active Substance: TERBINAFINE HYDROCHLORIDE
     Indication: Osteomyelitis
  4. VORICONAZOLE [Suspect]
     Active Substance: VORICONAZOLE
     Indication: Scedosporium infection
     Dosage: 400 MG, BID (LOADING DOSE)
     Route: 065
  5. VORICONAZOLE [Suspect]
     Active Substance: VORICONAZOLE
     Indication: Osteomyelitis
     Dosage: 200 MG, BID
     Route: 065
  6. VORICONAZOLE [Suspect]
     Active Substance: VORICONAZOLE
     Indication: Arthritis infective
     Dosage: 800 MG, BID (PROGRESSIVE DOSE)
     Route: 065
  7. VORICONAZOLE [Suspect]
     Active Substance: VORICONAZOLE
     Indication: Scedosporium infection
     Dosage: 400 MG TWICE PER DAY (LOADING DOSE)
     Route: 065
  8. VORICONAZOLE [Suspect]
     Active Substance: VORICONAZOLE
     Dosage: 800 MG TWICE PER DAY (LOADING DOSE)
     Route: 065
  9. VORICONAZOLE [Suspect]
     Active Substance: VORICONAZOLE
     Dosage: 200 MG, BID
     Route: 065
  10. MILTEFOSINE [Suspect]
     Active Substance: MILTEFOSINE
     Indication: Scedosporium infection
     Dosage: 50 MG, TID
     Route: 065
  11. CEFTRIAXONE [Concomitant]
     Active Substance: CEFTRIAXONE
     Indication: Staphylococcal infection
     Dosage: 3 G, PER DAY
     Route: 065
  12. CEFTRIAXONE [Concomitant]
     Active Substance: CEFTRIAXONE
     Indication: Staphylococcus test positive

REACTIONS (11)
  - Squamous cell carcinoma of skin [Unknown]
  - Drug level decreased [Unknown]
  - Disease recurrence [Recovered/Resolved]
  - Visual impairment [Recovered/Resolved]
  - Photosensitivity reaction [Recovered/Resolved]
  - Treatment failure [Unknown]
  - Nausea [Recovered/Resolved]
  - Asthenia [Recovered/Resolved]
  - Drug effective for unapproved indication [Unknown]
  - Off label use [Unknown]
  - Product use issue [Unknown]
